FAERS Safety Report 15839342 (Version 1)
Quarter: 2019Q1

REPORT INFORMATION
  Report Type: Spontaneous
  Country: US (occurrence: US)
  Receive Date: 20190117
  Receipt Date: 20190117
  Transmission Date: 20190417
  Serious: Yes (Other)
  Sender: FDA-Public Use
  Company Number: US-TEVA-2019-US-996452

PATIENT
  Age: 20 Year
  Sex: Female

DRUGS (1)
  1. AMLODIPINE W/VALSARTAN TEVA [Suspect]
     Active Substance: AMLODIPINE\VALSARTAN
     Indication: HYPERTENSION
     Dosage: 1 DF: 10MG AMLODIPINE/320MG VALSARTAN

REACTIONS (2)
  - Recalled product administered [Unknown]
  - Cyst [Unknown]
